FAERS Safety Report 17915907 (Version 12)
Quarter: 2025Q1

REPORT INFORMATION
  Report Type: Spontaneous
  Country: US (occurrence: US)
  Receive Date: 20200619
  Receipt Date: 20250102
  Transmission Date: 20250409
  Serious: Yes (Hospitalization, Other)
  Sender: PFIZER
  Company Number: US-PFIZER INC-2020238338

PATIENT
  Age: 47 Year
  Sex: Female

DRUGS (13)
  1. XELJANZ XR [Suspect]
     Active Substance: TOFACITINIB CITRATE
     Indication: Rheumatoid arthritis
     Dosage: 11 MG, DAILY
     Route: 048
     Dates: start: 2019, end: 202002
  2. XELJANZ XR [Suspect]
     Active Substance: TOFACITINIB CITRATE
     Dosage: 11 MG, DAILY
     Route: 048
     Dates: start: 202004, end: 2020
  3. XELJANZ XR [Suspect]
     Active Substance: TOFACITINIB CITRATE
     Dosage: 11 MG, 1X/DAY
     Route: 048
     Dates: start: 202005, end: 202108
  4. XELJANZ XR [Suspect]
     Active Substance: TOFACITINIB CITRATE
     Dosage: 11 MG, 1X/DAY
     Route: 048
     Dates: start: 2023, end: 20240109
  5. XELJANZ XR [Suspect]
     Active Substance: TOFACITINIB CITRATE
     Dosage: 11 MG, DAILY
     Route: 048
     Dates: start: 202402
  6. XELJANZ XR [Suspect]
     Active Substance: TOFACITINIB CITRATE
     Dates: end: 2024
  7. XELJANZ XR [Suspect]
     Active Substance: TOFACITINIB CITRATE
     Dates: start: 2024, end: 2024
  8. XELJANZ XR [Suspect]
     Active Substance: TOFACITINIB CITRATE
     Dates: start: 2024, end: 202406
  9. XELJANZ XR [Suspect]
     Active Substance: TOFACITINIB CITRATE
     Dosage: 11 MG, 1X/DAY
     Route: 048
     Dates: start: 202408
  10. XELJANZ XR [Suspect]
     Active Substance: TOFACITINIB CITRATE
     Dosage: 11 MG, 1X/DAY
     Route: 048
     Dates: start: 202408, end: 202412
  11. METHOTREXATE SODIUM [Concomitant]
     Active Substance: METHOTREXATE SODIUM
     Dates: end: 202002
  12. METHOTREXATE SODIUM [Concomitant]
     Active Substance: METHOTREXATE SODIUM
     Dates: start: 202004, end: 2020
  13. METHOTREXATE SODIUM [Concomitant]
     Active Substance: METHOTREXATE SODIUM
     Dates: start: 202005

REACTIONS (40)
  - Herpes zoster [Recovered/Resolved]
  - Asthma [Not Recovered/Not Resolved]
  - Gait disturbance [Not Recovered/Not Resolved]
  - Dyspnoea [Unknown]
  - Chest discomfort [Unknown]
  - Respiratory syncytial virus infection [Unknown]
  - COVID-19 [Unknown]
  - Pneumonia [Unknown]
  - Gastrointestinal stromal tumour [Unknown]
  - Respiratory tract infection [Unknown]
  - Road traffic accident [Unknown]
  - Post-traumatic neck syndrome [Unknown]
  - Concussion [Unknown]
  - Drug ineffective [Unknown]
  - Influenza [Unknown]
  - Upper respiratory tract infection [Not Recovered/Not Resolved]
  - Fall [Unknown]
  - Accident at work [Unknown]
  - Peripheral swelling [Not Recovered/Not Resolved]
  - Pain in extremity [Not Recovered/Not Resolved]
  - Inflammation [Not Recovered/Not Resolved]
  - Pain [Unknown]
  - Arthritis [Unknown]
  - Skin discolouration [Unknown]
  - Meniscus injury [Unknown]
  - Influenza like illness [Unknown]
  - Stress [Unknown]
  - Crying [Unknown]
  - Anxiety [Unknown]
  - Depression [Unknown]
  - Sputum discoloured [Not Recovered/Not Resolved]
  - Rhinorrhoea [Not Recovered/Not Resolved]
  - Eye discharge [Not Recovered/Not Resolved]
  - Musculoskeletal chest pain [Not Recovered/Not Resolved]
  - Ear discomfort [Not Recovered/Not Resolved]
  - Loss of personal independence in daily activities [Not Recovered/Not Resolved]
  - Respiratory disorder [Not Recovered/Not Resolved]
  - Weight increased [Unknown]
  - Alopecia [Unknown]
  - Condition aggravated [Not Recovered/Not Resolved]

NARRATIVE: CASE EVENT DATE: 20200101
